FAERS Safety Report 14490246 (Version 1)
Quarter: 2018Q1

REPORT INFORMATION
  Report Type: Spontaneous
  Country: RU (occurrence: RU)
  Receive Date: 20180206
  Receipt Date: 20180206
  Transmission Date: 20180509
  Serious: Yes (Other)
  Sender: FDA-Public Use
  Company Number: RU-MERCK KGAA-2041433

PATIENT
  Age: 34 Year
  Sex: Female

DRUGS (4)
  1. NOVOTHYROX [Suspect]
     Active Substance: LEVOTHYROXINE SODIUM
     Indication: PAPILLARY THYROID CANCER
     Dates: start: 2010
  2. EUTHYROX [Suspect]
     Active Substance: LEVOTHYROXINE SODIUM
     Dates: start: 2015
  3. EUTHYROX [Suspect]
     Active Substance: LEVOTHYROXINE SODIUM
  4. EUTHYROX [Suspect]
     Active Substance: LEVOTHYROXINE SODIUM
     Dates: start: 2014

REACTIONS (8)
  - Blood thyroid stimulating hormone increased [None]
  - Live birth [Recovered/Resolved]
  - Anaemia of pregnancy [None]
  - Muscle spasms [None]
  - Gestational diabetes [None]
  - Polyhydramnios [None]
  - Maternal exposure during pregnancy [Recovered/Resolved]
  - Blood calcium decreased [None]

NARRATIVE: CASE EVENT DATE: 2015
